FAERS Safety Report 7927678-X (Version None)
Quarter: 2011Q4

REPORT INFORMATION
  Report Type: 
  Country: None (occurrence: None)
  Receive Date: 20111116
  Receipt Date: 20111103
  Transmission Date: 20120403
  Serious: Yes (Hospitalization)
  Sender: FDA-Public Use
  Company Number: 2011-01248

PATIENT
  Age: 44 Year
  Sex: Female
  Weight: 117.9352 kg

DRUGS (6)
  1. ATENOLOL [Concomitant]
  2. OMEGA-3 (CAPSULES) [Concomitant]
  3. PANTOPRAZOLE (PROTONIX) (CAPSULES) [Concomitant]
  4. AMLODIPINE BESYLATE [Suspect]
     Indication: HYPERTENSION
     Dosage: 5 MG (5 MG,1 IN 1 D),PER ORAL
     Route: 048
     Dates: start: 20111102, end: 20111103
  5. INSULIN LISPRO (HUMALOG) (INJECTION) [Concomitant]
  6. LORAZEPAM [Concomitant]

REACTIONS (8)
  - NAUSEA [None]
  - THINKING ABNORMAL [None]
  - DIZZINESS [None]
  - FEELING ABNORMAL [None]
  - DYSPNOEA [None]
  - ANXIETY [None]
  - BLOOD PRESSURE INCREASED [None]
  - LYMPHADENOPATHY [None]
